FAERS Safety Report 13884731 (Version 1)
Quarter: 2017Q3

REPORT INFORMATION
  Report Type: Spontaneous
  Country: IN (occurrence: IN)
  Receive Date: 20170821
  Receipt Date: 20170821
  Transmission Date: 20171127
  Serious: Yes (Death, Hospitalization, Other)
  Sender: FDA-Public Use
  Company Number: IN-TORRENT-00001302

PATIENT
  Age: 45 Year
  Sex: Female

DRUGS (4)
  1. TRIHEXYPHENIDYL [Suspect]
     Active Substance: TRIHEXYPHENIDYL
  2. IBUPROFEN. [Suspect]
     Active Substance: IBUPROFEN
  3. RISPERIDONE. [Suspect]
     Active Substance: RISPERIDONE
  4. HALOPERIDOL. [Suspect]
     Active Substance: HALOPERIDOL

REACTIONS (5)
  - Intestinal obstruction [Recovered/Resolved]
  - Faecaloma [Recovered/Resolved]
  - Self-medication [Unknown]
  - Large intestine perforation [Recovered/Resolved]
  - Respiratory disorder [Fatal]
